FAERS Safety Report 12449244 (Version 2)
Quarter: 2017Q1

REPORT INFORMATION
  Report Type: Report from Study
  Country: None (occurrence: BR)
  Receive Date: 20160608
  Receipt Date: 20170124
  Transmission Date: 20170428
  Serious: Yes (Other)
  Sender: FDA-Public Use
  Company Number: BR-ABBVIE-16P-020-1647591-00

PATIENT
  Age: 66 Year
  Sex: Female
  Weight: 55 kg

DRUGS (6)
  1. SYNTHROID [Suspect]
     Active Substance: LEVOTHYROXINE SODIUM
     Indication: HYPOTHYROIDISM
     Route: 065
     Dates: start: 201603
  2. CALCIFEROL [Concomitant]
     Active Substance: ERGOCALCIFEROL
     Indication: OSTEOPOROSIS
     Dosage: 2 CANDIES
     Route: 048
     Dates: start: 201606
  3. BEZAFIBRATE [Concomitant]
     Active Substance: BEZAFIBRATE
     Indication: BLOOD TRIGLYCERIDES
     Dosage: 1 TABLET EVERY OTHER DAY, EVERY DAY THAT IS EVEN NUMBER
     Route: 048
     Dates: start: 201610
  4. SYNTHROID [Suspect]
     Active Substance: LEVOTHYROXINE SODIUM
     Route: 065
     Dates: start: 201603
  5. CHOLECALCIFEROL [Concomitant]
     Active Substance: CHOLECALCIFEROL
     Indication: OSTEOPOROSIS
     Dosage: 1 TABLET, ONE IN ONE WEEK EVERY SUNDAY
     Route: 048
     Dates: start: 2016
  6. CRESTOR [Concomitant]
     Active Substance: ROSUVASTATIN CALCIUM
     Indication: BLOOD CHOLESTEROL
     Dosage: 1 TABLET EVERY OTHER DAY, EVERY DAY THAT IS ODD NUMBER
     Route: 048
     Dates: start: 201610

REACTIONS (3)
  - Thyroiditis [Recovered/Resolved]
  - Breast cancer [Recovered/Resolved]
  - Thyroid operation [Unknown]

NARRATIVE: CASE EVENT DATE: 201603
